FAERS Safety Report 11686816 (Version 2)
Quarter: 2015Q4

REPORT INFORMATION
  Report Type: Spontaneous
  Country: ES (occurrence: ES)
  Receive Date: 20151030
  Receipt Date: 20151105
  Transmission Date: 20160304
  Serious: Yes (Life-Threatening, Hospitalization, Other)
  Sender: FDA-Public Use
  Company Number: ES-GILEAD-2015-0178876

PATIENT
  Age: 69 Year
  Sex: Female

DRUGS (12)
  1. OLYSIO [Suspect]
     Active Substance: SIMEPREVIR
     Indication: HEPATITIS C
     Dosage: UNK MG, QD
     Route: 048
     Dates: start: 20150417, end: 20150709
  2. SOVALDI [Suspect]
     Active Substance: SOFOSBUVIR
     Indication: HEPATITIS C
     Dosage: 400 MG, QD
     Route: 048
     Dates: start: 20150417, end: 20150709
  3. FORMOTEROL [Concomitant]
     Active Substance: FORMOTEROL
  4. BECLOMETHASONE                     /00212602/ [Concomitant]
  5. ASA [Concomitant]
     Active Substance: ASPIRIN
  6. RIBAVIRINA [Suspect]
     Active Substance: RIBAVIRIN
     Dosage: UNK UNKNOWN, QD
     Route: 048
     Dates: start: 20150617, end: 20150629
  7. ERYTHROPOIETIN [Concomitant]
     Active Substance: ERYTHROPOIETIN
     Indication: ANAEMIA
  8. RIBAVIRINA [Suspect]
     Active Substance: RIBAVIRIN
     Indication: HEPATITIS C
     Dosage: UNK UNKNOWN, QD
     Route: 048
     Dates: start: 20150417, end: 20150613
  9. BISOPROLOL [Concomitant]
     Active Substance: BISOPROLOL
  10. OMEPRAZOLE. [Concomitant]
     Active Substance: OMEPRAZOLE
  11. MYCOPHENOLIC ACID. [Suspect]
     Active Substance: MYCOPHENOLIC ACID
     Indication: LIVER TRANSPLANT
     Dosage: UNK UNKNOWN, QD
     Route: 048
     Dates: start: 20150227, end: 20150729
  12. DOXAZOSINA                         /00639301/ [Concomitant]
     Indication: PRODUCT USED FOR UNKNOWN INDICATION
     Dosage: UNK UNKNOWN, QD
     Route: 048
     Dates: start: 200804, end: 20150723

REACTIONS (1)
  - Pancytopenia [Recovering/Resolving]

NARRATIVE: CASE EVENT DATE: 20150514
